FAERS Safety Report 9215192 (Version 4)
Quarter: 2014Q2

REPORT INFORMATION
  Report Type: Spontaneous
  Country: JP (occurrence: JP)
  Receive Date: 20130405
  Receipt Date: 20140423
  Transmission Date: 20141212
  Serious: Yes (Hospitalization, Other)
  Sender: FDA-Public Use
  Company Number: JP-PFIZER INC-2013108611

PATIENT
  Age: 82 Year
  Sex: Female

DRUGS (8)
  1. LYRICA [Suspect]
     Indication: NEURALGIA
     Dosage: 25 MG, 2X/DAY
     Route: 048
     Dates: start: 20130226, end: 20130227
  2. LYRICA [Suspect]
     Dosage: 25 MG, 3X/DAY
     Route: 048
     Dates: start: 20130228, end: 20130320
  3. LYRICA [Suspect]
     Dosage: 75 MG, 2X/DAY
     Route: 048
     Dates: start: 20130321, end: 20130322
  4. LOXONIN [Concomitant]
     Indication: ANALGESIC THERAPY
     Dosage: 0.5 G, 3X/DAY
     Route: 048
     Dates: start: 20130226, end: 20130322
  5. BALANCE [Concomitant]
     Indication: ANALGESIC THERAPY
     Dosage: 0.05 G, 3X/DAY
     Route: 048
     Dates: start: 20130226, end: 20130322
  6. TERNELIN [Concomitant]
     Indication: ANALGESIC THERAPY
     Dosage: 0.37 G, 3X/DAY
     Route: 048
     Dates: start: 20130226, end: 20130322
  7. CAFFEINE HYDRATE [Concomitant]
     Indication: ANALGESIC THERAPY
     Dosage: 0.03 G, 3X/DAY
     Route: 048
     Dates: start: 20130226, end: 20130322
  8. ACETAMINOPHEN [Concomitant]
     Indication: ANALGESIC THERAPY
     Dosage: 0.05 G, 3X/DAY
     Route: 048
     Dates: start: 20130226, end: 20130322

REACTIONS (4)
  - Hepatic function abnormal [Recovered/Resolved]
  - Drug-induced liver injury [Unknown]
  - Dizziness [Recovered/Resolved]
  - Hypoaesthesia [Recovered/Resolved]
